FAERS Safety Report 5190456-1 (Version None)
Quarter: 2006Q4

REPORT INFORMATION
  Report Type: 
  Country: None (occurrence: None)
  Receive Date: 20061222
  Receipt Date: 20060307
  Transmission Date: 20070319
  Serious: Yes (Death, Hospitalization)
  Sender: FDA-Public Use
  Company Number: US-ELI_LILLY_AND_COMPANY-US200603002517

PATIENT
  Age: 50 Year
  Sex: Female
  Weight: 62.585 kg

DRUGS (3)
  1. VENLAFAXINE HCL [Concomitant]
     Dates: start: 19960101, end: 20031001
  2. ATENOLOL [Concomitant]
     Dates: start: 19950304, end: 20031001
  3. ZYPREXA [Suspect]
     Dosage: UNK, UNK
     Route: 048
     Dates: start: 20030101

REACTIONS (3)
  - DEATH [None]
  - DIABETES MELLITUS [None]
  - PANCREATITIS [None]
